FAERS Safety Report 17480702 (Version 1)
Quarter: 2020Q1

REPORT INFORMATION
  Report Type: Spontaneous
  Country: GB (occurrence: GB)
  Receive Date: 20200301
  Receipt Date: 20200301
  Transmission Date: 20200409
  Serious: Yes (Other)
  Sender: FDA-Public Use
  Company Number: GB-NOVOPROD-713512

PATIENT
  Age: 52 Year
  Sex: Female
  Weight: 50.8 kg

DRUGS (1)
  1. NOVOFEM [Suspect]
     Active Substance: ESTRADIOL HEMIHYDRATE\NORETHINDRONE ACETATE
     Indication: HORMONE REPLACEMENT THERAPY
     Dosage: 1 MG, QD
     Route: 048
     Dates: start: 20190801, end: 20191108

REACTIONS (5)
  - Axillary pain [Recovering/Resolving]
  - Night sweats [Unknown]
  - Throat tightness [Unknown]
  - Feeling cold [Unknown]
  - Folliculitis [Unknown]

NARRATIVE: CASE EVENT DATE: 20191015
